FAERS Safety Report 9011185 (Version 1)
Quarter: 2013Q1

REPORT INFORMATION
  Report Type: Spontaneous
  Country: CA (occurrence: CA)
  Receive Date: 20130109
  Receipt Date: 20130109
  Transmission Date: 20140127
  Serious: Yes (Other)
  Sender: FDA-Public Use
  Company Number: CHPA2012CA025433

PATIENT
  Age: 52 Year
  Sex: Female

DRUGS (2)
  1. BUCKLEY^S MIXTURE [Suspect]
     Indication: ATYPICAL PNEUMONIA
     Dosage: 2 TSP, PRN
     Route: 048
     Dates: start: 2004
  2. BUCKLEY^S (DM) [Suspect]
     Indication: ATYPICAL PNEUMONIA
     Dosage: UNK, UNK
     Route: 048
     Dates: end: 2009

REACTIONS (3)
  - Atypical pneumonia [Unknown]
  - Off label use [Unknown]
  - Accidental exposure to product [None]
